FAERS Safety Report 12841197 (Version 4)
Quarter: 2016Q4

REPORT INFORMATION
  Report Type: Other
  Country: US (occurrence: US)
  Receive Date: 20161012
  Receipt Date: 20161130
  Transmission Date: 20170207
  Serious: Yes (Other)
  Sender: FDA-Public Use
  Company Number: US-SHIRE-US201613925

PATIENT
  Age: 82 Year
  Sex: Female
  Weight: 60.77 kg

DRUGS (2)
  1. THERATEARS [Concomitant]
     Active Substance: CARBOXYMETHYLCELLULOSE SODIUM
     Indication: DRY EYE
     Dosage: 1 GTT, OTHER (3-4 TIMES PER DAY)
     Route: 047
     Dates: start: 20160923
  2. XIIDRA [Suspect]
     Active Substance: LIFITEGRAST
     Indication: DRY EYE
     Dosage: 1 GTT (EACH EYE), ONE DOSE (PRESCRIBED AS 2X/DAY:BID)
     Route: 047
     Dates: start: 20160923, end: 20160923

REACTIONS (5)
  - Vision blurred [Not Recovered/Not Resolved]
  - Instillation site irritation [Recovered/Resolved]
  - Frustration tolerance decreased [Unknown]
  - Headache [Not Recovered/Not Resolved]
  - Visual impairment [Not Recovered/Not Resolved]

NARRATIVE: CASE EVENT DATE: 20160923
